FAERS Safety Report 9687943 (Version 1)
Quarter: 2013Q4

REPORT INFORMATION
  Report Type: Spontaneous
  Country: US (occurrence: None)
  Receive Date: 20131113
  Receipt Date: 20131113
  Transmission Date: 20140711
  Serious: Yes (Death)
  Sender: FDA-Public Use
  Company Number: None

PATIENT
  Age: 54 Year
  Sex: Female

DRUGS (6)
  1. RIBAVIRIN [Suspect]
     Indication: HEPATITIS C
     Route: 048
     Dates: start: 20131011, end: 20131106
  2. PEGASYS PROCLICK [Suspect]
     Indication: HEPATITIS C
     Route: 058
     Dates: start: 20131011, end: 20131106
  3. ZOLOFT [Concomitant]
  4. TOPAMAX [Concomitant]
  5. TRAMADOL [Concomitant]
  6. MULTIVITAMIN [Concomitant]

REACTIONS (1)
  - Death [None]
